FAERS Safety Report 8170830-1 (Version None)
Quarter: 2012Q1

REPORT INFORMATION
  Report Type: 
  Country: None (occurrence: None)
  Receive Date: 20120104
  Receipt Date: 20111014
  Transmission Date: 20120608
  Serious: No
  Sender: FDA-Public Use
  Company Number: 2011HGS-002644

PATIENT
  Age: 39 Year
  Sex: Female
  Weight: 73.9363 kg

DRUGS (13)
  1. PLAQUENIL (HYDROXYCHLOROQUINE SULFATE) (HYDROXYCHLOROQUINE SULFATE) [Concomitant]
  2. HYDROCODONE (HYDROCODONE) (HYDROCODONE) [Concomitant]
  3. MIRAPEX (PRAMIPEXOLE DIHYDROCHLORIDE) (PRAMIPEXOLE DIHYDROCHLORIDE) [Concomitant]
  4. LYRICA [Concomitant]
  5. BABY ASPIRIN (ACETYLSALICYLIC ACID) (ACETYLSALICYLIC ACID) [Concomitant]
  6. PHENERGAN (PROMETHAZIDE HYDROCHLORIDE) (PROMETHAZINE HYDROCHLORIDE) [Concomitant]
  7. CELLCEPT (MYCOPHENOLATE MOFETIL) (MYCOPHENOLATE MOFETIL) [Concomitant]
  8. CALCIUM (CALCIUM) (CALCIUM) [Concomitant]
  9. BENLYSTA [Suspect]
     Indication: SYSTEMIC LUPUS ERYTHEMATOSUS
     Dosage: 10 MG/KG, 1 IN 28 D
     Dates: start: 20110512, end: 20110915
  10. PRILOSEC (OMEPRAZOLE) (OMEPRAZOLE) [Concomitant]
  11. WELLBUTRIN (BUPROPION HYDROCHLORIDE) (BUPROPION HYDROCHLORIDE) [Concomitant]
  12. RESTASIS (CICLOSPORIN) (CICLOSPORIN) [Concomitant]
  13. REGLAN (METOCLOPRAMIDE HYDROCHLORIDE) (METOCLOPRAMIDE HYDROCHLORIDE) [Concomitant]

REACTIONS (7)
  - FATIGUE [None]
  - BREAST PAIN [None]
  - DIARRHOEA [None]
  - BONE PAIN [None]
  - ARTHRALGIA [None]
  - DRUG INEFFECTIVE [None]
  - NAUSEA [None]
